FAERS Safety Report 15676164 (Version 1)
Quarter: 2018Q4

REPORT INFORMATION
  Report Type: Spontaneous
  Country: JP (occurrence: JP)
  Receive Date: 20181130
  Receipt Date: 20181130
  Transmission Date: 20190205
  Serious: Yes (Hospitalization, Other)
  Sender: FDA-Public Use
  Company Number: JP-009507513-1811JPN003048J

PATIENT
  Age: 78 Year
  Sex: Male

DRUGS (1)
  1. BELSOMRA [Suspect]
     Active Substance: SUVOREXANT
     Indication: INSOMNIA
     Dosage: 15 MILLIGRAM, QD
     Route: 048
     Dates: start: 201805, end: 20181108

REACTIONS (3)
  - Nightmare [Recovered/Resolved]
  - Cerebral infarction [Unknown]
  - Middle insomnia [Unknown]

NARRATIVE: CASE EVENT DATE: 201808
